FAERS Safety Report 23358602 (Version 48)
Quarter: 2025Q2

REPORT INFORMATION
  Report Type: Report from Study
  Country: US (occurrence: US)
  Receive Date: 20240102
  Receipt Date: 20250528
  Transmission Date: 20250716
  Serious: Yes (Hospitalization, Other)
  Sender: TAKEDA
  Company Number: US-TAKEDA-US202022225

PATIENT
  Age: 62 Year
  Sex: Female
  Weight: 102 kg

DRUGS (79)
  1. HUMAN C1-ESTERASE INHIBITOR [Suspect]
     Active Substance: HUMAN C1-ESTERASE INHIBITOR
     Indication: Immune system disorder
     Dosage: 200 DOSAGE FORM, 2/WEEK
     Dates: start: 20190214
  2. HUMAN C1-ESTERASE INHIBITOR [Suspect]
     Active Substance: HUMAN C1-ESTERASE INHIBITOR
     Dosage: 2000 INTERNATIONAL UNIT, 2/WEEK
     Dates: start: 20190218
  3. HUMAN C1-ESTERASE INHIBITOR [Suspect]
     Active Substance: HUMAN C1-ESTERASE INHIBITOR
     Dosage: 2000 INTERNATIONAL UNIT, 2/WEEK
  4. EPINEPHRINE [Concomitant]
     Active Substance: EPINEPHRINE
  5. MELATONIN [Concomitant]
     Active Substance: MELATONIN
  6. NEILMED SINUS RINSE [Concomitant]
     Active Substance: SODIUM BICARBONATE\SODIUM CHLORIDE
  7. SENNA S [Concomitant]
     Active Substance: DOCUSATE SODIUM\SENNOSIDES
  8. BUDESONIDE [Concomitant]
     Active Substance: BUDESONIDE
  9. HEPARIN [Concomitant]
     Active Substance: HEPARIN SODIUM
  10. SODIUM CHLORIDE [Concomitant]
     Active Substance: SODIUM CHLORIDE
  11. METOLAZONE [Concomitant]
     Active Substance: METOLAZONE
  12. FENOGLIDE [Concomitant]
     Active Substance: FENOFIBRATE
  13. POTASSIUM CHLORIDE [Concomitant]
     Active Substance: POTASSIUM CHLORIDE
     Indication: Product used for unknown indication
  14. ALBUTEROL SULFATE [Concomitant]
     Active Substance: ALBUTEROL SULFATE
  15. NITROGLYCERIN [Concomitant]
     Active Substance: NITROGLYCERIN
  16. DICLOFENAC SODIUM [Concomitant]
     Active Substance: DICLOFENAC SODIUM
  17. LATANOPROST [Concomitant]
     Active Substance: LATANOPROST
  18. BENADRYL ALLERGY [Concomitant]
     Active Substance: DIPHENHYDRAMINE HYDROCHLORIDE
  19. FIRAZYR [Concomitant]
     Active Substance: ICATIBANT ACETATE
  20. DIPHENHYDRAMINE [Concomitant]
     Active Substance: DIPHENHYDRAMINE
  21. DIPHENHYDRAMINE HYDROCHLORIDE [Concomitant]
     Active Substance: DIPHENHYDRAMINE HYDROCHLORIDE
  22. NORVASC [Concomitant]
     Active Substance: AMLODIPINE BESYLATE
  23. IBUPROFEN [Concomitant]
     Active Substance: IBUPROFEN
  24. CYCLOBENZAPRINE HYDROCHLORIDE [Concomitant]
     Active Substance: CYCLOBENZAPRINE HYDROCHLORIDE
  25. SODIUM CHLORIDE [Concomitant]
     Active Substance: SODIUM CHLORIDE
  26. FUROSEMIDE [Concomitant]
     Active Substance: FUROSEMIDE
  27. FENOFIBRATE [Concomitant]
     Active Substance: FENOFIBRATE
  28. POLYVINYL ALCOHOL [Concomitant]
     Active Substance: POLYVINYL ALCOHOL
  29. STERILE WATER [Concomitant]
     Active Substance: WATER
  30. VITAMIN C [Concomitant]
     Active Substance: ASCORBIC ACID
  31. GLUCOPHAGE XR [Concomitant]
     Active Substance: METFORMIN HYDROCHLORIDE
  32. ECONAZOLE NITRATE [Concomitant]
     Active Substance: ECONAZOLE NITRATE
  33. FISH OIL [Concomitant]
     Active Substance: FISH OIL
  34. VITAMIN D3 [Concomitant]
     Active Substance: CHOLECALCIFEROL
  35. MAGNESIUM [Concomitant]
     Active Substance: MAGNESIUM
  36. LASIX [Concomitant]
     Active Substance: FUROSEMIDE
  37. NYSTOP [Concomitant]
     Active Substance: NYSTATIN
  38. PFIZER-BIONTECH COVID-19 VACCINE [Concomitant]
     Active Substance: TOZINAMERAN
  39. POTASSIUM [Concomitant]
     Active Substance: POTASSIUM
  40. IPRATROPIUM BROMIDE AND ALBUTEROL SULFATE [Concomitant]
     Active Substance: ALBUTEROL SULFATE\IPRATROPIUM BROMIDE
  41. PSYLLIUM [Concomitant]
     Active Substance: PLANTAGO SEED
  42. CALCIUM [Concomitant]
     Active Substance: CALCIUM
  43. CALCIUM CARBONATE\VITAMIN D [Concomitant]
     Active Substance: CALCIUM CARBONATE\VITAMIN D
  44. NYAMYC [Concomitant]
     Active Substance: NYSTATIN
  45. SENNOSIDES [Concomitant]
     Active Substance: SENNOSIDES
  46. DOCUSATE SODIUM [Concomitant]
     Active Substance: DOCUSATE SODIUM
  47. POLYMYXIN [Concomitant]
     Active Substance: POLYMYXIN
  48. LIDOCAINE [Concomitant]
     Active Substance: LIDOCAINE
  49. ZOFRAN [Concomitant]
     Active Substance: ONDANSETRON HYDROCHLORIDE
  50. COLCHICINE [Concomitant]
     Active Substance: COLCHICINE
  51. BACITRACIN [Concomitant]
     Active Substance: BACITRACIN
  52. PREDNISONE [Concomitant]
     Active Substance: PREDNISONE
  53. PSYLLIUM HUSK [Concomitant]
     Active Substance: PSYLLIUM HUSK
  54. Omega [Concomitant]
     Indication: Product used for unknown indication
  55. DOXYCYCLINE HYCLATE [Concomitant]
     Active Substance: DOXYCYCLINE HYCLATE
  56. IPRATROPIUM [Concomitant]
     Active Substance: IPRATROPIUM
  57. CEPACOL SORE THROAT NOS [Concomitant]
     Active Substance: UNSPECIFIED INGREDIENT
  58. ONDANSETRON HYDROCHLORIDE [Concomitant]
     Active Substance: ONDANSETRON HYDROCHLORIDE
  59. ZZZQUIL NIGHTTIME SLEEP-AID [Concomitant]
     Active Substance: DIPHENHYDRAMINE HYDROCHLORIDE
  60. CLARITIN-D 12 HOUR [Concomitant]
     Active Substance: LORATADINE\PSEUDOEPHEDRINE SULFATE
  61. MELOXICAM [Concomitant]
     Active Substance: MELOXICAM
  62. CLOTRIMAZOLE [Concomitant]
     Active Substance: CLOTRIMAZOLE
  63. AZELASTINE HYDROCHLORIDE\FLUTICASONE PROPIONATE [Concomitant]
     Active Substance: AZELASTINE HYDROCHLORIDE\FLUTICASONE PROPIONATE
  64. ALLEGRA ALLERGY [Concomitant]
     Active Substance: FEXOFENADINE HYDROCHLORIDE
  65. ALLEGRA D-12 HOUR [Concomitant]
     Active Substance: FEXOFENADINE HYDROCHLORIDE\PSEUDOEPHEDRINE HYDROCHLORIDE
  66. SULFAMETHOXAZOLE\TRIMETHOPRIM [Concomitant]
     Active Substance: SULFAMETHOXAZOLE\TRIMETHOPRIM
  67. ALLEGRA-D [Concomitant]
     Active Substance: FEXOFENADINE HYDROCHLORIDE\PSEUDOEPHEDRINE HYDROCHLORIDE
  68. HEPARIN SODIUM [Concomitant]
     Active Substance: HEPARIN SODIUM
  69. NITROFURANTOIN [Concomitant]
     Active Substance: NITROFURANTOIN
  70. BAZA ANTIFUNGAL [Concomitant]
     Active Substance: MICONAZOLE NITRATE
  71. ACETAMINOPHEN [Concomitant]
     Active Substance: ACETAMINOPHEN
  72. TYLENOL [Concomitant]
     Active Substance: ACETAMINOPHEN
  73. BACLOFEN [Concomitant]
     Active Substance: BACLOFEN
  74. ECOTRIN [Concomitant]
     Active Substance: ASPIRIN
  75. ACIDOPHILUS [Concomitant]
     Active Substance: LACTOBACILLUS ACIDOPHILUS
  76. ASPIRIN [Concomitant]
     Active Substance: ASPIRIN
  77. FLUTICASONE PROPIONATE [Concomitant]
     Active Substance: FLUTICASONE PROPIONATE
  78. AMLODIPINE [Concomitant]
     Active Substance: AMLODIPINE BESYLATE
  79. ATORVASTATIN [Concomitant]
     Active Substance: ATORVASTATIN

REACTIONS (80)
  - Bacteraemia [Unknown]
  - Pharyngeal swelling [Unknown]
  - Dysphagia [Unknown]
  - Implant site pain [Unknown]
  - Food allergy [Unknown]
  - Type 2 diabetes mellitus [Unknown]
  - Staphylococcal infection [Unknown]
  - Incision site discharge [Unknown]
  - Lower respiratory tract infection [Unknown]
  - Glaucoma [Unknown]
  - Aphasia [Unknown]
  - Arthralgia [Not Recovered/Not Resolved]
  - Hereditary angioedema [Not Recovered/Not Resolved]
  - Nausea [Unknown]
  - Dizziness [Unknown]
  - Fungal infection [Recovered/Resolved]
  - Nasal septum deviation [Unknown]
  - Rash erythematous [Recovered/Resolved]
  - Allergy to plants [Unknown]
  - Pain in extremity [Recovered/Resolved]
  - Oedema peripheral [Not Recovered/Not Resolved]
  - Dysphonia [Unknown]
  - Psychomotor hyperactivity [Unknown]
  - Eye pruritus [Unknown]
  - Rhinitis [Recovering/Resolving]
  - Skin laceration [Unknown]
  - Mass [Unknown]
  - Road traffic accident [Unknown]
  - Muscular weakness [Unknown]
  - Irritability [Unknown]
  - Furuncle [Unknown]
  - Weight decreased [Unknown]
  - Back pain [Recovered/Resolved]
  - Gastrointestinal infection [Unknown]
  - Gastrointestinal pain [Unknown]
  - Gait disturbance [Unknown]
  - Oropharyngeal pain [Unknown]
  - Blood potassium decreased [Unknown]
  - Blood potassium increased [Unknown]
  - Dyspnoea [Unknown]
  - Oedema [Unknown]
  - Abdominal hernia [Unknown]
  - Abnormal weight gain [Unknown]
  - Chest discomfort [Unknown]
  - Dermal cyst [Unknown]
  - Asthenia [Not Recovered/Not Resolved]
  - Nasal congestion [Recovering/Resolving]
  - Sneezing [Unknown]
  - Lacrimation increased [Unknown]
  - Productive cough [Unknown]
  - Rhonchi [Unknown]
  - Decreased appetite [Unknown]
  - Rhinorrhoea [Unknown]
  - Eye pain [Unknown]
  - Abnormal loss of weight [Unknown]
  - Eye infection [Unknown]
  - Weight increased [Unknown]
  - Joint noise [Unknown]
  - Post procedural complication [Not Recovered/Not Resolved]
  - Product packaging issue [Unknown]
  - Bone pain [Unknown]
  - Nasopharyngitis [Unknown]
  - Multiple allergies [Unknown]
  - Product storage error [Unknown]
  - Genital rash [Recovered/Resolved]
  - Urinary tract infection [Unknown]
  - Fungal skin infection [Recovering/Resolving]
  - Procedural pain [Unknown]
  - Peripheral swelling [Recovered/Resolved]
  - Post procedural oedema [Unknown]
  - Feeling hot [Unknown]
  - Fall [Unknown]
  - Cold sweat [Unknown]
  - Cough [Unknown]
  - Pain [Unknown]
  - Sinusitis [Recovered/Resolved]
  - Fatigue [Unknown]
  - Diarrhoea [Unknown]
  - Pyrexia [Recovered/Resolved]
  - Rash [Recovered/Resolved]

NARRATIVE: CASE EVENT DATE: 20210126
